FAERS Safety Report 6477995-8 (Version None)
Quarter: 2009Q4

REPORT INFORMATION
  Report Type: 
  Country: None (occurrence: None)
  Receive Date: 20091207
  Receipt Date: 20091127
  Transmission Date: 20100525
  Serious: Yes (Hospitalization)
  Sender: FDA-Public Use
  Company Number: B0609048A

PATIENT
  Age: 62 Year
  Sex: Male

DRUGS (6)
  1. AUGMENTIN '125' [Suspect]
     Dosage: 1G THREE TIMES PER DAY
     Route: 048
     Dates: start: 20090721, end: 20090730
  2. DIANTALVIC [Suspect]
     Indication: SCIATICA
     Route: 048
     Dates: start: 20090101, end: 20090801
  3. DOLIPRANE [Suspect]
     Dosage: 1G VARIABLE DOSE
     Route: 048
     Dates: start: 20090721, end: 20090730
  4. BIOCALYPTOL [Concomitant]
     Dosage: 1TBS THREE TIMES PER DAY
     Route: 048
     Dates: start: 20090721
  5. DIAMICRON [Concomitant]
     Dosage: 3UNIT PER DAY
     Route: 065
  6. GLUCOPHAGE [Concomitant]
     Dosage: 850MG TWICE PER DAY
     Route: 065

REACTIONS (6)
  - ABDOMINAL PAIN [None]
  - ABDOMINAL PAIN UPPER [None]
  - HEPATIC ENZYME INCREASED [None]
  - HEPATIC STEATOSIS [None]
  - HEPATITIS [None]
  - PRURITUS [None]
